FAERS Safety Report 17833393 (Version 1)
Quarter: 2020Q2

REPORT INFORMATION
  Report Type: Report from Study
  Country: GB (occurrence: GB)
  Receive Date: 20200528
  Receipt Date: 20200528
  Transmission Date: 20200714
  Serious: Yes (Hospitalization, Other)
  Sender: FDA-Public Use
  Company Number: GB-EMD SERONO-9165601

PATIENT
  Age: 70 Year
  Sex: Male

DRUGS (1)
  1. REBIF [Suspect]
     Active Substance: INTERFERON BETA-1A
     Indication: MULTIPLE SCLEROSIS
     Route: 058
     Dates: start: 2006

REACTIONS (3)
  - Hospitalisation [Unknown]
  - Type 2 diabetes mellitus [Unknown]
  - Blood pressure abnormal [Unknown]
